FAERS Safety Report 14102717 (Version 1)
Quarter: 2017Q4

REPORT INFORMATION
  Report Type: Spontaneous
  Country: US (occurrence: US)
  Receive Date: 20171018
  Receipt Date: 20171018
  Transmission Date: 20180321
  Serious: No
  Sender: FDA-Public Use
  Company Number: US-BAUSCH-BL-2017-008927

PATIENT
  Age: 57 Year
  Sex: Female

DRUGS (3)
  1. WELLBUTRIN XL [Concomitant]
     Active Substance: BUPROPION HYDROCHLORIDE
     Indication: DEPRESSION
  2. ADDERALL [Concomitant]
     Active Substance: AMPHETAMINE ASPARTATE\AMPHETAMINE SULFATE\DEXTROAMPHETAMINE SACCHARATE\DEXTROAMPHETAMINE SULFATE
     Indication: SUPPLEMENTATION THERAPY
     Route: 048
     Dates: start: 2016
  3. BUPROPION XL [Suspect]
     Active Substance: BUPROPION
     Indication: DEPRESSION
     Route: 048

REACTIONS (1)
  - Drug ineffective [Unknown]
